FAERS Safety Report 6554648-9 (Version None)
Quarter: 2010Q1

REPORT INFORMATION
  Report Type: 
  Country: None (occurrence: None)
  Receive Date: 20100127
  Receipt Date: 20100125
  Transmission Date: 20100710
  Serious: Yes (Disabling, Other)
  Sender: FDA-Public Use
  Company Number: US-PFIZER INC-2009269702

PATIENT
  Sex: Male
  Weight: 81.633 kg

DRUGS (6)
  1. DILANTIN [Suspect]
     Indication: GRAND MAL CONVULSION
     Dosage: 200 MG, 2X/DAY
  2. LYRICA [Suspect]
     Indication: DIABETIC NEUROPATHY
     Dosage: 200 MG, 1X/DAY
  3. LYRICA [Suspect]
     Dosage: 100 MG, 1X/DAY
  4. CELONTIN [Suspect]
     Indication: CONVULSION
     Dosage: UNK
  5. DILANTIN [Suspect]
     Indication: CONVULSION
     Dosage: 75 MG, 1X/DAY
  6. PHENOBARBITAL [Concomitant]
     Dosage: UNK

REACTIONS (7)
  - AGGRESSION [None]
  - BALANCE DISORDER [None]
  - CONVULSION [None]
  - DIABETES MELLITUS [None]
  - FALL [None]
  - GAIT DISTURBANCE [None]
  - HIP FRACTURE [None]
